APPROVED DRUG PRODUCT: TESTOSTERONE
Active Ingredient: TESTOSTERONE
Strength: 25MG/ML
Dosage Form/Route: INJECTABLE;INJECTION
Application: A086420 | Product #001
Applicant: WATSON LABORATORIES INC
Approved: May 10, 1983 | RLD: No | RS: No | Type: DISCN